FAERS Safety Report 14444522 (Version 1)
Quarter: 2018Q1

REPORT INFORMATION
  Report Type: Report from Study
  Country: None (occurrence: CA)
  Receive Date: 20180126
  Receipt Date: 20180126
  Transmission Date: 20180509
  Serious: Yes (Other)
  Sender: FDA-Public Use
  Company Number: CA-ABBVIE-18K-028-2235693-00

PATIENT
  Age: 36 Year
  Sex: Female

DRUGS (1)
  1. HUMIRA [Suspect]
     Active Substance: ADALIMUMAB
     Indication: CROHN^S DISEASE
     Route: 058
     Dates: start: 20120712, end: 20171211

REACTIONS (9)
  - Diarrhoea [Unknown]
  - Cyst [Not Recovered/Not Resolved]
  - Ulcer [Not Recovered/Not Resolved]
  - Sinus congestion [Unknown]
  - Arthralgia [Not Recovered/Not Resolved]
  - Anal fissure [Recovered/Resolved]
  - Mouth ulceration [Not Recovered/Not Resolved]
  - Furuncle [Not Recovered/Not Resolved]
  - Influenza [Unknown]

NARRATIVE: CASE EVENT DATE: 2017
